FAERS Safety Report 12042811 (Version 1)
Quarter: 2016Q1

REPORT INFORMATION
  Report Type: Spontaneous
  Country: CA (occurrence: CA)
  Receive Date: 20160208
  Receipt Date: 20160208
  Transmission Date: 20160526
  Serious: Yes (Other)
  Sender: FDA-Public Use
  Company Number: CA-009507513-1602CAN002734

PATIENT
  Sex: Female

DRUGS (1)
  1. ZOLINZA [Suspect]
     Active Substance: VORINOSTAT
     Indication: CEREBELLOPONTINE ANGLE TUMOUR
     Dosage: 85 MG, OD X 21 DAYS PER CYCLE
     Route: 048
     Dates: start: 201601, end: 2016

REACTIONS (2)
  - Neoplasm progression [Unknown]
  - Product use issue [Unknown]
